FAERS Safety Report 19569643 (Version 6)
Quarter: 2024Q1

REPORT INFORMATION
  Report Type: Spontaneous
  Country: US (occurrence: US)
  Receive Date: 20210716
  Receipt Date: 20240125
  Transmission Date: 20240410
  Serious: Yes (Hospitalization)
  Sender: FDA-Public Use
  Company Number: US-PFIZER INC-2021828949

PATIENT
  Age: 78 Year
  Sex: Female
  Weight: 104.78 kg

DRUGS (2)
  1. VYNDAMAX [Suspect]
     Active Substance: TAFAMIDIS
     Indication: Amyloidosis
     Dosage: 61 MG
     Dates: start: 202010
  2. VYNDAMAX [Suspect]
     Active Substance: TAFAMIDIS
     Dosage: 60 MG, ONCE A DAY

REACTIONS (4)
  - Cellulitis [Unknown]
  - Nasal congestion [Unknown]
  - Cough [Unknown]
  - Off label use [Unknown]

NARRATIVE: CASE EVENT DATE: 20240101
